FAERS Safety Report 6438784-3 (Version None)
Quarter: 2009Q4

REPORT INFORMATION
  Report Type: 
  Country: None (occurrence: None)
  Receive Date: 20091113
  Receipt Date: 20091105
  Transmission Date: 20100525
  Serious: Yes (Other)
  Sender: FDA-Public Use
  Company Number: US-JNJFOC-20091102346

PATIENT
  Sex: Female
  Weight: 62.6 kg

DRUGS (5)
  1. DURAGESIC-100 [Suspect]
     Indication: OSTEOARTHRITIS
     Route: 062
  2. DURAGESIC-100 [Suspect]
     Route: 062
  3. TRAMADOL HCL [Concomitant]
     Indication: BREAKTHROUGH PAIN
     Route: 065
  4. HYDROCODONE [Concomitant]
     Indication: BREAKTHROUGH PAIN
     Route: 065
  5. LISINOPRIL [Concomitant]
     Indication: HYPERTENSION
     Route: 065

REACTIONS (5)
  - ADVERSE DRUG REACTION [None]
  - DISORIENTATION [None]
  - PRODUCT QUALITY ISSUE [None]
  - TREATMENT NONCOMPLIANCE [None]
  - VOMITING [None]
